FAERS Safety Report 4290070-6 (Version None)
Quarter: 2004Q1

REPORT INFORMATION
  Report Type: 
  Country: None (occurrence: None)
  Receive Date: 20040206
  Receipt Date: 20040129
  Transmission Date: 20041129
  Serious: Yes (Hospitalization, Other)
  Sender: FDA-Public Use
  Company Number: FRWYE545229JAN04

PATIENT
  Age: 35 Year
  Sex: Male

DRUGS (5)
  1. RAPAMUNE [Suspect]
     Indication: PROPHYLAXIS AGAINST TRANSPLANT REJECTION
     Dosage: 9 MG 1X PER 1 DAY, ORAL; 6 MG 1X PER 1 DAY, ORAL
     Route: 048
     Dates: start: 20030904, end: 20031201
  2. RAPAMUNE [Suspect]
     Indication: PROPHYLAXIS AGAINST TRANSPLANT REJECTION
     Dosage: 9 MG 1X PER 1 DAY, ORAL; 6 MG 1X PER 1 DAY, ORAL
     Route: 048
     Dates: start: 20040101
  3. CELLCEPT [Suspect]
     Indication: PROPHYLAXIS AGAINST TRANSPLANT REJECTION
     Dosage: 1.5 G 1X PER 1 DAY, ORAL
     Route: 048
     Dates: start: 20030903
  4. PREDNISONE [Suspect]
     Indication: PROPHYLAXIS AGAINST TRANSPLANT REJECTION
     Dosage: 10 MG 1X PER 1 DAY, ORAL
     Route: 048
     Dates: start: 20030905
  5. DIURETICS (DIURETICS) [Concomitant]

REACTIONS (4)
  - ACUTE PULMONARY OEDEMA [None]
  - CELLULITIS PHARYNGEAL [None]
  - LEFT VENTRICULAR FAILURE [None]
  - SIALOADENITIS [None]
